FAERS Safety Report 7010889-8 (Version None)
Quarter: 2010Q3

REPORT INFORMATION
  Report Type: 
  Country: None (occurrence: None)
  Receive Date: 20100923
  Receipt Date: 20100923
  Transmission Date: 20110219
  Serious: Yes (Other)
  Sender: FDA-Public Use
  Company Number: None

PATIENT
  Age: 39 Year
  Sex: Female
  Weight: 48.5349 kg

DRUGS (2)
  1. AMRIX [Suspect]
     Indication: MUSCLE SPASMS
     Dosage: 15MG ONCE DAILY PO
     Route: 048
     Dates: start: 20100906, end: 20100911
  2. AMRIX [Suspect]
     Indication: PAIN
     Dosage: 15MG ONCE DAILY PO
     Route: 048
     Dates: start: 20100906, end: 20100911

REACTIONS (6)
  - DIZZINESS [None]
  - DRUG INTERACTION [None]
  - MUSCLE SPASMS [None]
  - MUSCULOSKELETAL STIFFNESS [None]
  - OVERDOSE [None]
  - PAIN [None]
